FAERS Safety Report 12224881 (Version 2)
Quarter: 2016Q2

REPORT INFORMATION
  Report Type: Spontaneous
  Country: US (occurrence: US)
  Receive Date: 20160331
  Receipt Date: 20160419
  Transmission Date: 20160815
  Serious: No
  Sender: FDA-Public Use
  Company Number: US-PFIZER INC-2016153176

PATIENT
  Age: 74 Year
  Sex: Female
  Weight: 64 kg

DRUGS (2)
  1. PREMARIN [Suspect]
     Active Substance: ESTROGENS, CONJUGATED
     Indication: ATROPHIC VULVOVAGINITIS
     Dosage: 0.25 (NO UNIT PROVIDED), 3X/WEEK
     Route: 067
     Dates: start: 20160204, end: 201602
  2. PREMARIN [Suspect]
     Active Substance: ESTROGENS, CONJUGATED
     Indication: BLADDER DISORDER

REACTIONS (6)
  - Nipple pain [Recovered/Resolved]
  - Vulvovaginal pruritus [Recovered/Resolved]
  - Drug ineffective [Recovered/Resolved]
  - Drug hypersensitivity [Recovering/Resolving]
  - Anxiety [Recovered/Resolved]
  - Pruritus generalised [Recovering/Resolving]

NARRATIVE: CASE EVENT DATE: 201602
